FAERS Safety Report 24972836 (Version 6)
Quarter: 2025Q2

REPORT INFORMATION
  Report Type: Spontaneous
  Country: US (occurrence: US)
  Receive Date: 20250215
  Receipt Date: 20250616
  Transmission Date: 20250717
  Serious: Yes (Other)
  Sender: GLAXOSMITHKLINE
  Company Number: US-GSK-US2025014525

PATIENT
  Age: 64 Year
  Sex: Female

DRUGS (3)
  1. NUCALA [Suspect]
     Active Substance: MEPOLIZUMAB
     Indication: Asthma
  2. PREDNISONE [Suspect]
     Active Substance: PREDNISONE
     Indication: Infection
  3. BREZTRI [Concomitant]
     Active Substance: BUDESONIDE\FORMOTEROL\GLYCOPYRROLATE
     Indication: Asthma
     Dosage: UNK UNK, BID

REACTIONS (18)
  - Pulmonary congestion [Not Recovered/Not Resolved]
  - Immune system disorder [Unknown]
  - Cardiac disorder [Not Recovered/Not Resolved]
  - Asthma [Not Recovered/Not Resolved]
  - Arthritis [Not Recovered/Not Resolved]
  - Oropharyngeal pain [Not Recovered/Not Resolved]
  - Sinusitis [Unknown]
  - Eye infection [Unknown]
  - Ear infection [Unknown]
  - COVID-19 [Unknown]
  - Influenza [Unknown]
  - Nasal congestion [Not Recovered/Not Resolved]
  - Glucose tolerance impaired [Unknown]
  - Agitation [Unknown]
  - Illness [Unknown]
  - Acne [Unknown]
  - Drooling [Unknown]
  - Product dose omission issue [Unknown]

NARRATIVE: CASE EVENT DATE: 20250101
